FAERS Safety Report 10697264 (Version 2)
Quarter: 2015Q1

REPORT INFORMATION
  Report Type: Spontaneous
  Country: PL (occurrence: PL)
  Receive Date: 20150108
  Receipt Date: 20150108
  Transmission Date: 20150721
  Serious: Yes (Hospitalization)
  Sender: FDA-Public Use
  Company Number: PL-SA-2014SA180253

PATIENT
  Age: 34 Year
  Sex: Female

DRUGS (14)
  1. CLOMIFENE CITRATE [Suspect]
     Active Substance: CLOMIPHENE
     Indication: OVULATION INDUCTION
     Route: 065
  2. BROMOCRIPTINE MESILATE [Suspect]
     Active Substance: BROMOCRIPTINE
     Indication: HYPERPROLACTINAEMIA
     Route: 065
  3. BROMOCRIPTINE MESILATE [Suspect]
     Active Substance: BROMOCRIPTINE
     Indication: GALACTORRHOEA
     Route: 065
  4. SERTRALINE [Suspect]
     Active Substance: SERTRALINE HYDROCHLORIDE
     Indication: ADJUSTMENT DISORDER WITH DEPRESSED MOOD
     Route: 065
  5. CLOMIFENE CITRATE [Suspect]
     Active Substance: CLOMIPHENE
     Indication: OVULATION INDUCTION
     Route: 065
  6. BROMOCRIPTINE MESILATE [Suspect]
     Active Substance: BROMOCRIPTINE
     Indication: GALACTORRHOEA
     Route: 065
  7. BROMOCRIPTINE MESILATE [Suspect]
     Active Substance: BROMOCRIPTINE
     Indication: GALACTORRHOEA
     Route: 065
  8. BROMOCRIPTINE MESILATE [Suspect]
     Active Substance: BROMOCRIPTINE
     Indication: GALACTORRHOEA
     Route: 065
  9. OLANZAPINE. [Suspect]
     Active Substance: OLANZAPINE
     Indication: PSYCHOTIC DISORDER
     Route: 065
  10. FOLLITROPIN ALFA [Concomitant]
     Active Substance: FOLLITROPIN
     Indication: OVULATION INDUCTION
     Dosage: FIRST CYCLE OF ASSISTED REPRODUCTION OVARIAN STIMULATION
  11. BROMOCRIPTINE MESILATE [Suspect]
     Active Substance: BROMOCRIPTINE
     Indication: HYPERPROLACTINAEMIA
     Route: 065
  12. BROMOCRIPTINE MESILATE [Suspect]
     Active Substance: BROMOCRIPTINE
     Indication: HYPERPROLACTINAEMIA
     Route: 065
  13. SERTRALINE [Suspect]
     Active Substance: SERTRALINE HYDROCHLORIDE
     Indication: ADJUSTMENT DISORDER WITH DEPRESSED MOOD
     Route: 065
  14. BROMOCRIPTINE MESILATE [Suspect]
     Active Substance: BROMOCRIPTINE
     Indication: HYPERPROLACTINAEMIA
     Route: 065

REACTIONS (17)
  - Tachyphrenia [Recovered/Resolved]
  - Adjustment disorder with depressed mood [Recovering/Resolving]
  - Insomnia [Unknown]
  - Psychotic disorder [Recovered/Resolved]
  - Delusional perception [Recovered/Resolved]
  - Restlessness [Recovered/Resolved]
  - Exposure during pregnancy [Unknown]
  - Sluggishness [Recovered/Resolved]
  - Disturbance in attention [Recovered/Resolved]
  - Suicidal ideation [Recovered/Resolved]
  - Suspiciousness [Recovered/Resolved]
  - Depressed mood [Unknown]
  - Decreased appetite [Recovered/Resolved]
  - Eating disorder [Recovered/Resolved]
  - Persecutory delusion [Recovered/Resolved]
  - Anxiety [Unknown]
  - Drug ineffective [Unknown]
